FAERS Safety Report 5892238-1 (Version None)
Quarter: 2008Q3

REPORT INFORMATION
  Report Type: 
  Country: None (occurrence: None)
  Receive Date: 20080919
  Receipt Date: 20080915
  Transmission Date: 20090109
  Serious: Yes (Other)
  Sender: FDA-Public Use
  Company Number: 2008SP018079

PATIENT
  Age: 82 Year
  Sex: Male
  Weight: 81.6475 kg

DRUGS (31)
  1. MIRALAX [Suspect]
     Indication: OFF LABEL USE
     Dosage: 17 GM QD PO
     Route: 048
     Dates: start: 20080601, end: 20080830
  2. AUGMENTIN '125' [Concomitant]
  3. ALBUTEROL [Concomitant]
  4. FLOVENT [Concomitant]
  5. SEREVENT [Concomitant]
  6. NASONEX [Concomitant]
  7. SODIUM CHLORIDE [Concomitant]
  8. TOBRAMYCIN [Concomitant]
  9. GENTAMICIN [Concomitant]
  10. MUCINEX [Concomitant]
  11. COUMADIN [Concomitant]
  12. PROPECIA [Concomitant]
  13. ROGAINE [Concomitant]
  14. NYSTATIN W/TRIAMCINOLONE [Concomitant]
  15. CHLORHEXIDINE GLUCONATE [Concomitant]
  16. DITROPAN [Concomitant]
  17. DETROL LA [Concomitant]
  18. ALLEGRA [Concomitant]
  19. AMCINONIDE [Concomitant]
  20. BIAFINE [Concomitant]
  21. COREG [Concomitant]
  22. VASOTEC [Concomitant]
  23. LANOXIN [Concomitant]
  24. CYCLOBENZAPRINE HCL [Concomitant]
  25. NAMENDA [Concomitant]
  26. LASIX [Concomitant]
  27. SPIRONOLACTONE [Concomitant]
  28. CITRUCEL [Concomitant]
  29. PREDNISONE [Concomitant]
  30. OMNICEF [Concomitant]
  31. AMOXICILLIN [Concomitant]

REACTIONS (8)
  - ANOREXIA [None]
  - ASTHENIA [None]
  - DIARRHOEA [None]
  - DIZZINESS [None]
  - FAECES DISCOLOURED [None]
  - INCORRECT DRUG ADMINISTRATION DURATION [None]
  - MALAISE [None]
  - WEIGHT DECREASED [None]
